FAERS Safety Report 15457965 (Version 1)
Quarter: 2018Q4

REPORT INFORMATION
  Report Type: Spontaneous
  Country: TW (occurrence: TW)
  Receive Date: 20181003
  Receipt Date: 20181003
  Transmission Date: 20190204
  Serious: Yes (Hospitalization, Other)
  Sender: FDA-Public Use
  Company Number: TW-FLAMINGO-002141

PATIENT
  Age: 58 Year
  Sex: Female

DRUGS (1)
  1. METRONIDAZOLE. [Suspect]
     Active Substance: METRONIDAZOLE
     Indication: PSEUDOMEMBRANOUS COLITIS
     Dosage: ENTERAL DOSE OF 500MG THREE TIMES A DAY

REACTIONS (2)
  - Toxic encephalopathy [Recovering/Resolving]
  - Apallic syndrome [Not Recovered/Not Resolved]
